FAERS Safety Report 8952572 (Version 1)
Quarter: 2012Q4

REPORT INFORMATION
  Report Type: 
  Country: AT (occurrence: AT)
  Receive Date: 20121205
  Receipt Date: 20121205
  Transmission Date: 20130627
  Serious: Yes (Other)
  Sender: FDA-Public Use
  Company Number: AT-UCBSA-072339

PATIENT
  Sex: Female

DRUGS (4)
  1. VIMPAT [Suspect]
     Indication: EPILEPSY
     Route: 048
  2. KEPPRA [Concomitant]
     Indication: EPILEPSY
     Route: 048
  3. CONVULEX [Concomitant]
     Indication: EPILEPSY
     Route: 048
  4. TEMESTA [Concomitant]
     Indication: EPILEPSY
     Route: 042

REACTIONS (1)
  - Atrial fibrillation [Unknown]
